FAERS Safety Report 22072160 (Version 1)
Quarter: 2023Q1

REPORT INFORMATION
  Report Type: Spontaneous
  Country: CA (occurrence: CA)
  Receive Date: 20230308
  Receipt Date: 20230308
  Transmission Date: 20230418
  Serious: Yes (Other)
  Sender: FDA-Public Use
  Company Number: CA-002147023-NVSC2023CA046906

PATIENT
  Age: 15 Year
  Sex: Male

DRUGS (1)
  1. METHOTREXATE [Suspect]
     Active Substance: METHOTREXATE
     Indication: Product used for unknown indication
     Dosage: 1 DOSAGE FORM
     Route: 058

REACTIONS (5)
  - Headache [Unknown]
  - Nausea [Unknown]
  - Fear of injection [Unknown]
  - Drug intolerance [Unknown]
  - Off label use [Unknown]
